FAERS Safety Report 23969438 (Version 1)
Quarter: 2024Q2

REPORT INFORMATION
  Report Type: Report from Study
  Country: US (occurrence: US)
  Receive Date: 20240612
  Receipt Date: 20240612
  Transmission Date: 20240716
  Serious: Yes (Other)
  Sender: FDA-Public Use
  Company Number: US-JAZZ PHARMACEUTICALS-2024-US-007977

PATIENT
  Sex: Female

DRUGS (3)
  1. EPIDIOLEX [Suspect]
     Active Substance: CANNABIDIOL
     Indication: Lennox-Gastaut syndrome
     Dosage: UNK
     Dates: start: 20230701
  2. EPIDIOLEX [Suspect]
     Active Substance: CANNABIDIOL
     Dosage: 3.5 MILLILITER, BID
     Route: 048
  3. CLOBAZAM [Concomitant]
     Active Substance: CLOBAZAM

REACTIONS (2)
  - Tonic convulsion [Recovering/Resolving]
  - Drug ineffective [Unknown]
